FAERS Safety Report 12460420 (Version 1)
Quarter: 2016Q2

REPORT INFORMATION
  Report Type: Spontaneous
  Country: BE (occurrence: BE)
  Receive Date: 20160613
  Receipt Date: 20160613
  Transmission Date: 20160815
  Serious: Yes (Other)
  Sender: FDA-Public Use
  Company Number: BE-ASTRAZENECA-2016SE60382

PATIENT
  Age: 74 Year
  Sex: Male

DRUGS (2)
  1. TRIPTORELINE [Concomitant]
     Active Substance: TRIPTORELIN
     Indication: PROSTATE CANCER
     Route: 065
  2. BICALUTAMIDE. [Suspect]
     Active Substance: BICALUTAMIDE
     Indication: PROSTATE CANCER
     Route: 048

REACTIONS (1)
  - Cholangitis [Recovered/Resolved]
